FAERS Safety Report 18329317 (Version 1)
Quarter: 2020Q3

REPORT INFORMATION
  Report Type: Spontaneous
  Country: FR (occurrence: FR)
  Receive Date: 20200930
  Receipt Date: 20200930
  Transmission Date: 20201103
  Serious: Yes (Hospitalization)
  Sender: FDA-Public Use
  Company Number: FR-ACCORD-203488

PATIENT
  Age: 77 Year
  Sex: Female

DRUGS (9)
  1. METFORMIN [Suspect]
     Active Substance: METFORMIN HYDROCHLORIDE
     Indication: PRODUCT USED FOR UNKNOWN INDICATION
     Route: 048
     Dates: start: 20200629, end: 20200629
  2. FUROSEMIDE. [Suspect]
     Active Substance: FUROSEMIDE
     Route: 048
     Dates: start: 20200629, end: 20200629
  3. ENALAPRIL [Suspect]
     Active Substance: ENALAPRIL
     Route: 048
     Dates: start: 20200629, end: 20200629
  4. FUROSEMIDE. [Suspect]
     Active Substance: FUROSEMIDE
     Indication: WRONG PATIENT RECEIVED PRODUCT
     Route: 048
     Dates: start: 20200629, end: 20200629
  5. METFORMIN [Suspect]
     Active Substance: METFORMIN HYDROCHLORIDE
     Indication: PRODUCT USED FOR UNKNOWN INDICATION
     Route: 048
     Dates: start: 20200629, end: 20200629
  6. GLICLAZIDE [Suspect]
     Active Substance: GLICLAZIDE
     Route: 048
     Dates: start: 20200629, end: 20200629
  7. EUPRESSY [URAPIDIL] [Suspect]
     Active Substance: URAPIDIL
     Dosage: 30 MG
     Route: 048
     Dates: start: 20200629, end: 20200629
  8. ENALAPRIL [Suspect]
     Active Substance: ENALAPRIL
     Indication: WRONG PATIENT RECEIVED PRODUCT
     Route: 048
     Dates: start: 20200629, end: 20200629
  9. METFORMIN [Suspect]
     Active Substance: METFORMIN HYDROCHLORIDE
     Route: 048
     Dates: start: 20200629, end: 20200629

REACTIONS (3)
  - Wrong patient received product [Unknown]
  - Accidental overdose [Unknown]
  - Agitation [Recovered/Resolved]

NARRATIVE: CASE EVENT DATE: 20200629
